FAERS Safety Report 5934629-6 (Version None)
Quarter: 2008Q4

REPORT INFORMATION
  Report Type: 
  Country: None (occurrence: None)
  Receive Date: 20081010
  Receipt Date: 20080703
  Transmission Date: 20090506
  Serious: No
  Sender: FDA-Public Use
  Company Number: 2008BM000133

PATIENT
  Age: 3 Year
  Sex: Male
  Weight: 25 kg

DRUGS (2)
  1. KUVAN [Suspect]
     Indication: PHENYLKETONURIA
     Dosage: 16 MG/KG;QD;PO; 16 MG/KG;QD;PO
     Route: 048
     Dates: start: 20080407, end: 20080702
  2. KUVAN [Suspect]
     Indication: PHENYLKETONURIA
     Dosage: 16 MG/KG;QD;PO; 16 MG/KG;QD;PO
     Route: 048
     Dates: start: 20080725

REACTIONS (2)
  - ABNORMAL BEHAVIOUR [None]
  - AGGRESSION [None]
